FAERS Safety Report 6908552-4 (Version None)
Quarter: 2010Q3

REPORT INFORMATION
  Report Type: 
  Country: None (occurrence: None)
  Receive Date: 20100805
  Receipt Date: 20100727
  Transmission Date: 20110219
  Serious: Yes (Other)
  Sender: FDA-Public Use
  Company Number: AT-PFIZER INC-2010094307

PATIENT
  Age: 85 Year
  Sex: Female

DRUGS (1)
  1. ZELDOX [Suspect]
     Indication: HYPERKINESIA
     Dosage: 40 MG, 1X/DAY
     Route: 048
     Dates: end: 20100101

REACTIONS (1)
  - PARKINSONISM [None]
